FAERS Safety Report 12915490 (Version 2)
Quarter: 2017Q1

REPORT INFORMATION
  Report Type: Spontaneous
  Country: US (occurrence: US)
  Receive Date: 20161106
  Receipt Date: 20170216
  Transmission Date: 20170428
  Serious: No
  Sender: FDA-Public Use
  Company Number: US-RELYPSA-RLY2016003009

PATIENT
  Sex: Male

DRUGS (17)
  1. TELMISARTAN. [Concomitant]
     Active Substance: TELMISARTAN
  2. TORSEMIDE. [Concomitant]
     Active Substance: TORSEMIDE
  3. VELTASSA [Suspect]
     Active Substance: PATIROMER
     Indication: CHRONIC KIDNEY DISEASE
  4. HYDRALAZINE HCL [Concomitant]
     Active Substance: HYDRALAZINE HYDROCHLORIDE
  5. LEVEMIR [Concomitant]
     Active Substance: INSULIN DETEMIR
  6. CENTRUM SILVER [Concomitant]
     Active Substance: MINERALS\VITAMINS
  7. COREG [Concomitant]
     Active Substance: CARVEDILOL
  8. METFORMIN HCL [Concomitant]
     Active Substance: METFORMIN HYDROCHLORIDE
  9. VELTASSA [Suspect]
     Active Substance: PATIROMER
     Indication: HYPERKALAEMIA
     Dosage: 8.4 G, QD
     Route: 048
     Dates: start: 20160715, end: 2016
  10. ASPIRIN. [Concomitant]
     Active Substance: ASPIRIN
  11. FLONASE                            /00908302/ [Concomitant]
     Active Substance: MOMETASONE FUROATE
  12. HUMALOG [Concomitant]
     Active Substance: INSULIN LISPRO
  13. VIAGRA [Concomitant]
     Active Substance: SILDENAFIL CITRATE
  14. PHOSLO [Concomitant]
     Active Substance: CALCIUM ACETATE
  15. SIMVASTATIN. [Concomitant]
     Active Substance: SIMVASTATIN
  16. AMLODIPINE BESYLATE. [Concomitant]
     Active Substance: AMLODIPINE BESYLATE
  17. VICTOZA [Concomitant]
     Active Substance: LIRAGLUTIDE

REACTIONS (3)
  - Pain in extremity [Unknown]
  - Blood potassium decreased [Not Recovered/Not Resolved]
  - Treatment noncompliance [Unknown]

NARRATIVE: CASE EVENT DATE: 2016
